FAERS Safety Report 9350396 (Version 1)
Quarter: 2013Q2

REPORT INFORMATION
  Report Type: Spontaneous
  Country: US (occurrence: None)
  Receive Date: 20130613
  Receipt Date: 20130613
  Transmission Date: 20140414
  Serious: Yes (Life-Threatening)
  Sender: FDA-Public Use
  Company Number: None

PATIENT
  Age: 91 Year
  Sex: Male
  Weight: 112.7 kg

DRUGS (1)
  1. CALCIUM/VITAMIN D [Suspect]
     Dosage: 1 TAB BID PO
     Route: 048
     Dates: start: 20130525, end: 20130604

REACTIONS (3)
  - Bradycardia [None]
  - Dyspnoea [None]
  - Swollen tongue [None]
